FAERS Safety Report 17618034 (Version 1)
Quarter: 2020Q2

REPORT INFORMATION
  Report Type: Spontaneous
  Country: US (occurrence: US)
  Receive Date: 20200402
  Receipt Date: 20200402
  Transmission Date: 20200713
  Serious: No
  Sender: FDA-Public Use
  Company Number: US-ROCHE-2380586

PATIENT
  Sex: Male

DRUGS (5)
  1. ERIVEDGE [Suspect]
     Active Substance: VISMODEGIB
     Indication: THROMBOCYTOPENIA
     Route: 048
     Dates: start: 201803
  2. BENAZEPRIL HCL [Concomitant]
     Active Substance: BENAZEPRIL HYDROCHLORIDE
  3. COUMADIN [Concomitant]
     Active Substance: WARFARIN SODIUM
  4. ATORVASTATIN CALCIUM. [Concomitant]
     Active Substance: ATORVASTATIN CALCIUM
  5. FISH OIL [Concomitant]
     Active Substance: FISH OIL

REACTIONS (7)
  - Taste disorder [Unknown]
  - Off label use [Unknown]
  - Intentional product use issue [Unknown]
  - Muscle spasms [Recovering/Resolving]
  - Fatigue [Unknown]
  - Constipation [Unknown]
  - Alopecia [Not Recovered/Not Resolved]
